FAERS Safety Report 19247338 (Version 2)
Quarter: 2022Q1

REPORT INFORMATION
  Report Type: Spontaneous
  Country: JP (occurrence: JP)
  Receive Date: 20210512
  Receipt Date: 20220129
  Transmission Date: 20220423
  Serious: Yes (Other)
  Sender: FDA-Public Use
  Company Number: JP-JNJFOC-20210519145

PATIENT
  Age: 77 Year
  Sex: Male

DRUGS (5)
  1. DARZALEX [Suspect]
     Active Substance: DARATUMUMAB
     Indication: Plasma cell myeloma
     Route: 041
     Dates: start: 20201228
  2. CARFILZOMIB [Suspect]
     Active Substance: CARFILZOMIB
     Indication: Plasma cell myeloma
     Dosage: DOSE UNKNOWN
     Route: 041
     Dates: start: 20201228, end: 202101
  3. CARFILZOMIB [Suspect]
     Active Substance: CARFILZOMIB
     Indication: Plasma cell myeloma
     Dosage: DOSE UNKNOWN
     Route: 041
     Dates: start: 202101, end: 202103
  4. CARFILZOMIB [Suspect]
     Active Substance: CARFILZOMIB
     Indication: Plasma cell myeloma
     Dosage: DOSE UNKNOWN
     Route: 041
     Dates: start: 202103
  5. DEXAMETHASONE [Suspect]
     Active Substance: DEXAMETHASONE
     Indication: Plasma cell myeloma
     Dosage: DOSE UNKNOWN
     Route: 065

REACTIONS (2)
  - Neutropenia [Unknown]
  - Cardiac failure [Unknown]

NARRATIVE: CASE EVENT DATE: 20210111
